FAERS Safety Report 6758757-0 (Version None)
Quarter: 2010Q2

REPORT INFORMATION
  Report Type: 
  Country: None (occurrence: None)
  Receive Date: 20100607
  Receipt Date: 20100531
  Transmission Date: 20101027
  Serious: Yes (Death, Life-Threatening)
  Sender: FDA-Public Use
  Company Number: FR-ROCHE-656084

PATIENT
  Sex: Female
  Weight: 95.2 kg

DRUGS (23)
  1. MYCOPHENOLATE MOFETIL [Suspect]
     Indication: RENAL TRANSPLANT
     Route: 065
     Dates: start: 20090816, end: 20090908
  2. PERFALGAN [Suspect]
     Indication: DRUG USE FOR UNKNOWN INDICATION
     Route: 065
     Dates: start: 20090903, end: 20090905
  3. CORTANCYL [Concomitant]
     Dates: start: 20090816, end: 20090908
  4. TACROLIMUS [Concomitant]
     Dates: start: 20090816, end: 20090908
  5. CORDARONE [Concomitant]
     Dates: start: 20090816, end: 20090908
  6. CORDARONE [Concomitant]
     Dates: end: 20090908
  7. ZEFFIX [Concomitant]
     Dates: start: 20090905, end: 20090908
  8. FORTUM [Concomitant]
     Dates: start: 20090907, end: 20090908
  9. FUNGIZONE [Concomitant]
     Dates: start: 20090821, end: 20090908
  10. FUNGIZONE [Concomitant]
     Dates: start: 20090907, end: 20090908
  11. AMIKIN [Concomitant]
     Dates: start: 20090905, end: 20090908
  12. FLUIMUCIL [Concomitant]
     Dates: start: 20090905, end: 20090908
  13. HEPARIN [Concomitant]
     Dates: start: 20090816, end: 20090905
  14. BACTRIM [Concomitant]
     Dates: start: 20090820, end: 20090905
  15. ROVALCYTE [Concomitant]
     Dates: start: 20090820, end: 20090904
  16. TOPALGIC [Concomitant]
     Dates: start: 20090903, end: 20090904
  17. LASIX [Concomitant]
     Dates: start: 20090824, end: 20090904
  18. PRIMPERAN TAB [Concomitant]
     Dates: start: 20090903, end: 20090904
  19. LEXOMIL [Concomitant]
     Dates: start: 20090902, end: 20090904
  20. NOVORAPID [Concomitant]
     Dates: start: 20090817, end: 20090905
  21. LANTUS [Concomitant]
     Dates: start: 20090423, end: 20090905
  22. MOPRAL [Concomitant]
     Dates: start: 20090905, end: 20090908
  23. IMIPENEM AND CILASTATIN [Concomitant]
     Dates: start: 20090905, end: 20090907

REACTIONS (2)
  - CARDIAC ARREST [None]
  - HEPATIC FAILURE [None]
